FAERS Safety Report 9496596 (Version 1)
Quarter: 2013Q3

REPORT INFORMATION
  Report Type: Spontaneous
  Country: GB (occurrence: None)
  Receive Date: 20130828
  Receipt Date: 20130828
  Transmission Date: 20140515
  Serious: Yes (Hospitalization, Other)
  Sender: FDA-Public Use
  Company Number: THQ2013A06266

PATIENT
  Age: 51 Year
  Sex: Male

DRUGS (6)
  1. LANSOPRAZOLE [Suspect]
     Indication: GASTROOESOPHAGEAL REFLUX DISEASE
     Dosage: 1 D?12/J
     Route: 048
     Dates: end: 20130612
  2. GLIVEC [Suspect]
     Indication: CHRONIC MYELOID LEUKAEMIA
     Dosage: 1 D
     Route: 048
     Dates: start: 20130606, end: 20130613
  3. AMLODIPINE [Concomitant]
  4. CITALOPRAM [Concomitant]
  5. RANITIDINE [Concomitant]
  6. ACIDEX (SODIUM BICARBONATE, CALCIUM CARBONATE, SODIUM ALGINATE) [Concomitant]

REACTIONS (4)
  - Glomerulonephritis [None]
  - Renal impairment [None]
  - Renal vasculitis [None]
  - Dialysis [None]
